FAERS Safety Report 8235704 (Version 2)
Quarter: 2013Q1

REPORT INFORMATION
  Report Type: Spontaneous
  Country: CA (occurrence: CA)
  Receive Date: 20111108
  Receipt Date: 20130326
  Transmission Date: 20140127
  Serious: Yes (Other)
  Sender: FDA-Public Use
  Company Number: CA-JNJFOC-20111102283

PATIENT
  Sex: Male
  Weight: 54 kg

DRUGS (1)
  1. REMICADE [Suspect]
     Indication: COLITIS ULCERATIVE
     Dosage: 5/10 MG/KG
     Route: 042
     Dates: start: 20110614, end: 20110721

REACTIONS (2)
  - Drug resistance [Unknown]
  - Drug ineffective [Unknown]
